FAERS Safety Report 20867801 (Version 2)
Quarter: 2022Q4

REPORT INFORMATION
  Report Type: Spontaneous
  Country: US (occurrence: US)
  Receive Date: 20220524
  Receipt Date: 20221107
  Transmission Date: 20230113
  Serious: No
  Sender: FDA-Public Use
  Company Number: US-TAKEDA-2022TUS034259

PATIENT
  Age: 39 Year
  Sex: Female

DRUGS (1)
  1. ENTYVIO [Suspect]
     Active Substance: VEDOLIZUMAB
     Indication: Crohn^s disease
     Dosage: UNK
     Route: 042
     Dates: start: 20160105

REACTIONS (4)
  - Eye disorder [Unknown]
  - Skin disorder [Unknown]
  - Gastrointestinal infection [Unknown]
  - Illness [Unknown]

NARRATIVE: CASE EVENT DATE: 20221027
